FAERS Safety Report 9695753 (Version 1)
Quarter: 2013Q4

REPORT INFORMATION
  Report Type: Spontaneous
  Country: US (occurrence: None)
  Receive Date: 20131118
  Receipt Date: 20131118
  Transmission Date: 20140711
  Serious: No
  Sender: FDA-Public Use
  Company Number: None

PATIENT
  Age: 27 Year
  Sex: Female

DRUGS (1)
  1. EXTRA STRENGTH HEADACHE RELIEF [Suspect]
     Indication: HEADACHE
     Dosage: APPROX. 3-4 MONTHS

REACTIONS (2)
  - Product odour abnormal [None]
  - Product quality issue [None]
